FAERS Safety Report 10552222 (Version 2)
Quarter: 2014Q4

REPORT INFORMATION
  Report Type: Spontaneous
  Country: US (occurrence: US)
  Receive Date: 20141029
  Receipt Date: 20141205
  Transmission Date: 20150529
  Serious: Yes (Disabling)
  Sender: FDA-Public Use
  Company Number: US-ELI_LILLY_AND_COMPANY-US201410007561

PATIENT
  Sex: Female
  Weight: 70.75 kg

DRUGS (2)
  1. CYMBALTA [Suspect]
     Active Substance: DULOXETINE HYDROCHLORIDE
     Indication: PAIN
     Dosage: 60 MG, QD
     Route: 048
     Dates: start: 2008, end: 20141017
  2. TRAMADOL [Concomitant]
     Active Substance: TRAMADOL
     Indication: PRODUCT USED FOR UNKNOWN INDICATION
     Dosage: 50 MG, BID
     Route: 065

REACTIONS (11)
  - Eye pain [Unknown]
  - Hallucination [Unknown]
  - Decreased interest [Unknown]
  - Fear [Unknown]
  - Dizziness [Unknown]
  - Hyperhidrosis [Unknown]
  - Migraine [Unknown]
  - Nausea [Unknown]
  - Back pain [Unknown]
  - Tachycardia [Unknown]
  - Photopsia [Unknown]
